FAERS Safety Report 8831038 (Version 2)
Quarter: 2012Q4

REPORT INFORMATION
  Report Type: 
  Country: CA (occurrence: CA)
  Receive Date: 20121008
  Receipt Date: 20121210
  Transmission Date: 20130627
  Serious: Yes (Other)
  Sender: FDA-Public Use
  Company Number: CA-NOVOPROD-360725

PATIENT
  Sex: Female
  Weight: 114.29 kg

DRUGS (4)
  1. VICTOZA [Suspect]
     Indication: TYPE 2 DIABETES MELLITUS
     Dosage: UNK
     Route: 065
     Dates: start: 20110719, end: 20120808
  2. METFORMIN [Concomitant]
  3. LOSEC                              /00661201/ [Concomitant]
     Dosage: 20 mg, qd
  4. CYANOCOBALAMIN [Concomitant]

REACTIONS (1)
  - Hyperthyroidism [Recovered/Resolved]
